FAERS Safety Report 16565182 (Version 1)
Quarter: 2019Q3

REPORT INFORMATION
  Report Type: Spontaneous
  Country: US (occurrence: US)
  Receive Date: 20190711
  Receipt Date: 20190711
  Transmission Date: 20191004
  Serious: Yes (Hospitalization)
  Sender: FDA-Public Use
  Company Number: None

PATIENT
  Age: 55 Year
  Sex: Female

DRUGS (8)
  1. STELARA [Suspect]
     Active Substance: USTEKINUMAB
     Indication: CROHN^S DISEASE
     Dosage: ?          OTHER FREQUENCY:EVERY 8 WEEKS;?
     Route: 058
     Dates: start: 20190110
  2. METOPROL SUC [Concomitant]
  3. PREDNISONE. [Concomitant]
     Active Substance: PREDNISONE
  4. ERYTHROMYCIN. [Concomitant]
     Active Substance: ERYTHROMYCIN
  5. NEOMYCIN. [Concomitant]
     Active Substance: NEOMYCIN
  6. TRAMADOL. [Concomitant]
     Active Substance: TRAMADOL
  7. TAMSULOSIN [Concomitant]
     Active Substance: TAMSULOSIN
  8. PANTOPRAZOLE [Concomitant]
     Active Substance: PANTOPRAZOLE

REACTIONS (2)
  - Surgery [None]
  - Therapy cessation [None]
